FAERS Safety Report 10580415 (Version 1)
Quarter: 2014Q4

REPORT INFORMATION
  Report Type: Spontaneous
  Country: SE (occurrence: SE)
  Receive Date: 20141112
  Receipt Date: 20141112
  Transmission Date: 20150529
  Serious: Yes (Other)
  Sender: FDA-Public Use
  Company Number: SE-009507513-1411SWE004233

PATIENT
  Age: 23 Year
  Sex: Male

DRUGS (2)
  1. TIMOTHY, STANDARDIZED [Suspect]
     Active Substance: PHLEUM PRATENSE POLLEN
     Indication: SEASONAL ALLERGY
     Dosage: 75000 SQ-T; ORAL LYOPHILISATE; SULINGUAL; DAILY
     Route: 060
     Dates: start: 20141007, end: 20141018
  2. DESLORATADINE. [Concomitant]
     Active Substance: DESLORATADINE

REACTIONS (3)
  - Hypersensitivity [Not Recovered/Not Resolved]
  - Nausea [Not Recovered/Not Resolved]
  - Mouth swelling [Not Recovered/Not Resolved]

NARRATIVE: CASE EVENT DATE: 20141007
